FAERS Safety Report 17702238 (Version 1)
Quarter: 2020Q2

REPORT INFORMATION
  Report Type: Spontaneous
  Country: CA (occurrence: CA)
  Receive Date: 20200424
  Receipt Date: 20200424
  Transmission Date: 20200714
  Serious: Yes (Other)
  Sender: FDA-Public Use
  Company Number: CA-DRREDDYS-USA/CAN/20/0122187

PATIENT
  Age: 70 Year
  Sex: Female
  Weight: 63 kg

DRUGS (1)
  1. FONDAPARINUX SODIUM. [Suspect]
     Active Substance: FONDAPARINUX SODIUM
     Indication: HEPARIN-INDUCED THROMBOCYTOPENIA
     Route: 058

REACTIONS (5)
  - Disseminated intravascular coagulation [Unknown]
  - Thrombocytopenia [Unknown]
  - Off label use [Unknown]
  - Therapeutic product cross-reactivity [Unknown]
  - Thrombosis [Unknown]
